FAERS Safety Report 23593563 (Version 1)
Quarter: 2024Q1

REPORT INFORMATION
  Report Type: Spontaneous
  Country: TR (occurrence: TR)
  Receive Date: 20240304
  Receipt Date: 20240304
  Transmission Date: 20240410
  Serious: Yes (Life-Threatening, Hospitalization, Other)
  Sender: FDA-Public Use
  Company Number: TR-LUNDBECK-DKLU3074768

PATIENT
  Age: 38 Year
  Sex: Female
  Weight: 61 kg

DRUGS (1)
  1. CIPRALEX [Suspect]
     Active Substance: ESCITALOPRAM OXALATE
     Indication: Antidepressant therapy
     Dosage: DOSE OF THE DRUG IS 20 MG. DOSAGE USED IS 10MG
     Route: 048
     Dates: start: 20240130, end: 20240130

REACTIONS (5)
  - Troponin increased [Not Recovered/Not Resolved]
  - Agitation [Not Recovered/Not Resolved]
  - Dizziness [Not Recovered/Not Resolved]
  - Palpitations [Not Recovered/Not Resolved]
  - Chest pain [Not Recovered/Not Resolved]

NARRATIVE: CASE EVENT DATE: 20240130
